FAERS Safety Report 5638040-7 (Version None)
Quarter: 2008Q1

REPORT INFORMATION
  Report Type: 
  Country: None (occurrence: None)
  Receive Date: 20080221
  Receipt Date: 20080207
  Transmission Date: 20080703
  Serious: Yes (Hospitalization)
  Sender: FDA-Public Use
  Company Number: 2008BI000357

PATIENT
  Age: 69 Year
  Sex: Female
  Weight: 77.1115 kg

DRUGS (1)
  1. AVONEX [Suspect]
     Indication: MULTIPLE SCLEROSIS
     Dosage: 30 UG; QW; IM
     Route: 030
     Dates: start: 20070701

REACTIONS (9)
  - CYSTITIS [None]
  - DEEP VEIN THROMBOSIS [None]
  - HAEMORRHAGE [None]
  - HEART RATE INCREASED [None]
  - HERNIA HIATUS REPAIR [None]
  - INCISION SITE INFECTION [None]
  - SCAR [None]
  - THROMBOSIS [None]
  - WEIGHT DECREASED [None]
